FAERS Safety Report 4842623-1 (Version None)
Quarter: 2005Q4

REPORT INFORMATION
  Report Type: 
  Country: None (occurrence: None)
  Receive Date: 20051201
  Receipt Date: 20051122
  Transmission Date: 20060501
  Serious: Yes (Death, Life-Threatening)
  Sender: FDA-Public Use
  Company Number: FR-GLAXOSMITHKLINE-B0402015A

PATIENT
  Age: 67 Year
  Sex: Female

DRUGS (4)
  1. AUGMENTIN [Suspect]
     Indication: ABDOMINAL ABSCESS
     Dosage: 3UNIT PER DAY
     Route: 048
     Dates: start: 20051014, end: 20051018
  2. FLAGYL [Suspect]
     Indication: ABDOMINAL ABSCESS
     Route: 048
     Dates: start: 20051014, end: 20051018
  3. SULFASALAZINE [Suspect]
     Dosage: 6UNIT PER DAY
     Route: 048
  4. SMECTA [Suspect]
     Dosage: 2UNIT PER DAY
     Route: 048

REACTIONS (4)
  - SKIN DISORDER [None]
  - SKIN LESION [None]
  - TOXIC EPIDERMAL NECROLYSIS [None]
  - TOXIC SKIN ERUPTION [None]
